FAERS Safety Report 4500309-7 (Version None)
Quarter: 2004Q4

REPORT INFORMATION
  Report Type: 
  Country: None (occurrence: None)
  Receive Date: 20041112
  Receipt Date: 20041103
  Transmission Date: 20050328
  Serious: Yes (Hospitalization)
  Sender: FDA-Public Use
  Company Number: PHNR2004AU01583

PATIENT
  Age: 71 Year
  Sex: Female

DRUGS (2)
  1. GLEEVEC [Suspect]
     Indication: CHRONIC MYELOID LEUKAEMIA
     Dosage: 400 MG, QD
     Route: 048
     Dates: start: 20040919, end: 20041022
  2. KEFLEX [Suspect]

REACTIONS (2)
  - AGRANULOCYTOSIS [None]
  - SEPTIC SHOCK [None]
